FAERS Safety Report 8157157-9 (Version None)
Quarter: 2012Q1

REPORT INFORMATION
  Report Type: 
  Country: None (occurrence: None)
  Receive Date: 20120209
  Receipt Date: 20120202
  Transmission Date: 20120608
  Serious: Yes (Other)
  Sender: FDA-Public Use
  Company Number: 2012030706

PATIENT
  Age: 60 Year
  Sex: Female
  Weight: 88.905 kg

DRUGS (18)
  1. HIZENTRA [Suspect]
  2. VESICARE [Concomitant]
  3. MUCINEX [Concomitant]
  4. JANUMET (DRUG USED IN DIABETES) [Concomitant]
  5. OMEPRAZOLE [Concomitant]
  6. POLYETHYLENE GLYCOL [Concomitant]
  7. METOCLOPRAMIDE [Concomitant]
  8. PROMETHAZINE (GALENIC /CODEINE/PROMETHAZINE/) [Concomitant]
  9. HIZENTRA [Suspect]
     Indication: IMMUNODEFICIENCY COMMON VARIABLE
     Dosage: SEE IMAGE
     Route: 058
  10. SINGULAIR [Concomitant]
  11. AMBIEN [Concomitant]
  12. TRIAMTERENE HCTZ (DYAZIDE) [Concomitant]
  13. OXYGEN (OXYGEN) [Concomitant]
  14. VITAMIN D [Concomitant]
  15. RANITIDINE HYDROCHLORIDE [Concomitant]
  16. HIZENTRA [Suspect]
  17. HIZENTRA [Suspect]
  18. FENOFIBRATE [Concomitant]

REACTIONS (2)
  - SINUSITIS [None]
  - RESPIRATORY TRACT INFECTION [None]
